FAERS Safety Report 5347002-9 (Version None)
Quarter: 2007Q2

REPORT INFORMATION
  Report Type: 
  Country: None (occurrence: None)
  Receive Date: 20070604
  Receipt Date: 20070508
  Transmission Date: 20071010
  Serious: Yes (Hospitalization)
  Sender: FDA-Public Use
  Company Number: 100#08#2007-01570

PATIENT
  Age: 46 Year
  Sex: Male

DRUGS (1)
  1. DOXYCYCLINE HYCLATE [Suspect]
     Indication: TOOTH INFECTION
     Dosage: 100 MG (TWICE DAILY)

REACTIONS (3)
  - ARTHRALGIA [None]
  - ORAL INTAKE REDUCED [None]
  - STEVENS-JOHNSON SYNDROME [None]
